FAERS Safety Report 23745737 (Version 4)
Quarter: 2024Q2

REPORT INFORMATION
  Report Type: Report from Study
  Country: CA (occurrence: CA)
  Receive Date: 20240416
  Receipt Date: 20240514
  Transmission Date: 20240716
  Serious: Yes (Hospitalization)
  Sender: FDA-Public Use
  Company Number: CA-BAUSCH-BL-2023-015917

PATIENT
  Age: 42 Year
  Sex: Male

DRUGS (6)
  1. SILIQ [Suspect]
     Active Substance: BRODALUMAB
     Indication: Psoriasis
     Dosage: 210 MG/1.5 ML, WEEK 0,1 AND 2
     Route: 058
     Dates: start: 20210729, end: 20210812
  2. SILIQ [Suspect]
     Active Substance: BRODALUMAB
     Dosage: 210 MG/1.5 ML, Q2 WEEKS
     Route: 058
     Dates: start: 2021, end: 20231007
  3. SILIQ [Suspect]
     Active Substance: BRODALUMAB
     Dosage: 210 MG/1.5 ML, Q2 WEEKS
     Route: 058
     Dates: start: 2023
  4. NADOLOL [Suspect]
     Active Substance: NADOLOL
     Indication: Blood pressure increased
     Route: 065
     Dates: start: 202404, end: 202404
  5. CITALOPRAM [Concomitant]
     Active Substance: CITALOPRAM\CITALOPRAM HYDROBROMIDE
     Indication: Product used for unknown indication
  6. ZOPICLONE [Concomitant]
     Active Substance: ZOPICLONE
     Indication: Product used for unknown indication

REACTIONS (7)
  - Localised infection [Unknown]
  - Hepatic infection [Unknown]
  - Blood pressure increased [Unknown]
  - Adverse drug reaction [Unknown]
  - Influenza [Unknown]
  - Product dose omission issue [Unknown]
  - Intentional dose omission [Unknown]

NARRATIVE: CASE EVENT DATE: 20220101
